FAERS Safety Report 4939633-2 (Version None)
Quarter: 2006Q1

REPORT INFORMATION
  Report Type: 
  Country: None (occurrence: None)
  Receive Date: 20060310
  Receipt Date: 20060227
  Transmission Date: 20060701
  Serious: Yes (Hospitalization)
  Sender: FDA-Public Use
  Company Number: US-MERCK-0603USA00442

PATIENT
  Age: 52 Year
  Sex: Male
  Weight: 105 kg

DRUGS (3)
  1. VIOXX [Suspect]
     Indication: MONARTHRITIS
     Route: 048
     Dates: start: 20010701, end: 20030101
  2. VITAMIN SOURCE GLUCOSAMINE CHONDROITIN MSM [Concomitant]
     Route: 065
  3. VITAMINS (UNSPECIFIED) [Concomitant]
     Route: 065

REACTIONS (6)
  - ANXIETY [None]
  - COLON CANCER [None]
  - DIVERTICULITIS [None]
  - HIP ARTHROPLASTY [None]
  - MUSCULOSKELETAL DISCOMFORT [None]
  - MYOCARDIAL INFARCTION [None]
